FAERS Safety Report 17441054 (Version 1)
Quarter: 2020Q1

REPORT INFORMATION
  Report Type: Spontaneous
  Country: DE (occurrence: DE)
  Receive Date: 20200220
  Receipt Date: 20200220
  Transmission Date: 20200409
  Serious: Yes (Other)
  Sender: FDA-Public Use
  Company Number: NVSC2020DE042820

PATIENT
  Age: 81 Year
  Sex: Female

DRUGS (1)
  1. PIPERACILLIN + TAZOBACTAM 4 G + 0.5 G POWDER FOR INJECTION [Suspect]
     Active Substance: PIPERACILLIN SODIUM\TAZOBACTAM SODIUM
     Indication: PRODUCT USED FOR UNKNOWN INDICATION
     Dosage: UNK
     Route: 041

REACTIONS (3)
  - Seizure [Unknown]
  - Dyskinesia [Unknown]
  - Speech disorder [Unknown]
